FAERS Safety Report 20539783 (Version 1)
Quarter: 2022Q1

REPORT INFORMATION
  Report Type: Spontaneous
  Country: CN (occurrence: CN)
  Receive Date: 20220302
  Receipt Date: 20220302
  Transmission Date: 20220423
  Serious: Yes (Hospitalization, Other)
  Sender: FDA-Public Use
  Company Number: CN-BAYER-2021A243457

PATIENT
  Age: 28 Year
  Sex: Male
  Weight: 68 kg

DRUGS (5)
  1. RIVAROXABAN [Suspect]
     Active Substance: RIVAROXABAN
     Indication: Vena cava thrombosis
     Dosage: 1 DF, BID
     Route: 048
     Dates: start: 20210720, end: 20210721
  2. RIVAROXABAN [Suspect]
     Active Substance: RIVAROXABAN
     Indication: Vena cava embolism
     Dosage: 1 DF, BID
     Route: 048
     Dates: start: 20210722, end: 20210723
  3. RIVAROXABAN [Suspect]
     Active Substance: RIVAROXABAN
     Indication: Pelvic venous thrombosis
  4. RIVAROXABAN [Suspect]
     Active Substance: RIVAROXABAN
     Indication: Deep vein thrombosis
  5. RIVAROXABAN [Suspect]
     Active Substance: RIVAROXABAN
     Indication: Anticoagulant therapy

REACTIONS (6)
  - Acute generalised exanthematous pustulosis [Recovering/Resolving]
  - Rash maculo-papular [Recovering/Resolving]
  - Rash pruritic [Recovering/Resolving]
  - Pustule [Recovering/Resolving]
  - Pigmentation disorder [Unknown]
  - Off label use [Unknown]

NARRATIVE: CASE EVENT DATE: 20210721
